FAERS Safety Report 6876252-5 (Version None)
Quarter: 2010Q3

REPORT INFORMATION
  Report Type: 
  Country: None (occurrence: None)
  Receive Date: 20100727
  Receipt Date: 20100726
  Transmission Date: 20110219
  Serious: Yes (Congenital Anomaly)
  Sender: FDA-Public Use
  Company Number: A0872221A

PATIENT
  Sex: Male

DRUGS (6)
  1. COMBIVIR [Suspect]
     Indication: HIV INFECTION
     Dates: start: 20040114
  2. EPIVIR [Suspect]
     Indication: HIV INFECTION
     Dates: start: 20031204, end: 20031229
  3. TRIMETHOPRIM + SULFAMETHOXAZOLE [Concomitant]
  4. FERROUS SULFATE [Concomitant]
  5. KETOCONOZOLE [Concomitant]
  6. SULFAMETHOXAZOLE [Concomitant]

REACTIONS (2)
  - DRUG EXPOSURE DURING PREGNANCY [None]
  - PREMATURE CLOSURE OF CRANIAL SUTURES [None]
